FAERS Safety Report 4891135-8 (Version None)
Quarter: 2006Q1

REPORT INFORMATION
  Report Type: 
  Country: None (occurrence: None)
  Receive Date: 20060125
  Receipt Date: 20050928
  Transmission Date: 20060701
  Serious: Yes (Hospitalization, Disabling)
  Sender: FDA-Public Use
  Company Number: US-MERCK-0509USA04833

PATIENT
  Age: 51 Year
  Sex: Male
  Weight: 65 kg

DRUGS (9)
  1. TEMAZEPAM [Concomitant]
     Route: 065
  2. ASPIRIN [Concomitant]
     Route: 065
  3. ALLERGENIC EXTRACT [Concomitant]
     Route: 065
  4. ENBREL [Concomitant]
     Route: 065
  5. CLARITIN [Concomitant]
     Route: 065
  6. PROZAC [Concomitant]
     Route: 065
  7. SOMA [Concomitant]
     Route: 065
  8. NASACORT AQ [Concomitant]
     Route: 065
  9. VIOXX [Suspect]
     Indication: PSORIATIC ARTHROPATHY
     Route: 048
     Dates: start: 20030301, end: 20031123

REACTIONS (4)
  - ACUTE MYOCARDIAL INFARCTION [None]
  - BLOOD CHOLESTEROL INCREASED [None]
  - CORONARY ARTERY DISEASE [None]
  - NEPHROLITHIASIS [None]
